FAERS Safety Report 9054279 (Version 1)
Quarter: 2013Q1

REPORT INFORMATION
  Report Type: Spontaneous
  Country: FR (occurrence: FR)
  Receive Date: 20130208
  Receipt Date: 20130208
  Transmission Date: 20140127
  Serious: Yes (Other)
  Sender: FDA-Public Use
  Company Number: FR-GLAXOSMITHKLINE-B0865779A

PATIENT
  Age: 50 None
  Sex: Male

DRUGS (2)
  1. SORIATANE [Suspect]
     Indication: PALMOPLANTAR KERATODERMA
     Dosage: 25MG PER DAY
     Route: 048
     Dates: start: 20121215, end: 20130117
  2. SEROPLEX [Concomitant]

REACTIONS (1)
  - Neutropenia [Recovered/Resolved]
